FAERS Safety Report 23265545 (Version 1)
Quarter: 2023Q4

REPORT INFORMATION
  Report Type: Spontaneous
  Country: US (occurrence: US)
  Receive Date: 20231206
  Receipt Date: 20231206
  Transmission Date: 20240110
  Serious: No
  Sender: FDA-Public Use
  Company Number: US-drreddys-SPO/USA/23/0186671

PATIENT
  Age: 59 Year

DRUGS (1)
  1. ZENATANE [Suspect]
     Active Substance: ISOTRETINOIN
     Indication: Product used for unknown indication
     Dosage: RMA ISSUE DATE: 31 JULY 2023 12:15:00 PM, 30 AUGUST 2023 04:45:48 PM, 30 SEPTEMBER 2023 12:29:05 PM

REACTIONS (1)
  - Drug intolerance [Unknown]
